FAERS Safety Report 9846329 (Version 1)
Quarter: 2013Q4

REPORT INFORMATION
  Report Type: Spontaneous
  Country: US (occurrence: None)
  Receive Date: 20131224
  Receipt Date: 20131224
  Transmission Date: 20140711
  Serious: Yes (Other)
  Sender: FDA-Public Use
  Company Number: PHEH2013US021315

PATIENT
  Age: 40 Year
  Sex: Male

DRUGS (6)
  1. GILENYA (FINGOLIMOD) CAPSULE, 0.5 MG [Suspect]
     Indication: MULTIPLE SCLEROSIS
     Dates: start: 20130801
  2. NAMENDA (MEMANTINE HYDROCHLORIDE) [Concomitant]
  3. KEPPRA (LEVETIRACETAM) [Concomitant]
  4. OXYCODONE (OXYCODONE) [Concomitant]
  5. VITAMIN D (ERGOCALCIFEROL) [Concomitant]
  6. ASPIRIN (ACETYLSALICYLIC ACID) [Concomitant]

REACTIONS (3)
  - Ear discomfort [None]
  - Chills [None]
  - Blood pressure increased [None]
